FAERS Safety Report 17779974 (Version 1)
Quarter: 2020Q2

REPORT INFORMATION
  Report Type: Spontaneous
  Country: US (occurrence: US)
  Receive Date: 20200513
  Receipt Date: 20200513
  Transmission Date: 20200714
  Serious: Yes (Hospitalization, Other)
  Sender: FDA-Public Use
  Company Number: US-NAPPMUNDI-USA-2020-0152289

PATIENT
  Sex: Female

DRUGS (2)
  1. HYDROCODONE BITARTRATE AND ACETAMINOPHEN [Suspect]
     Active Substance: ACETAMINOPHEN\HYDROCODONE BITARTRATE
     Indication: PRODUCT USED FOR UNKNOWN INDICATION
     Dosage: UNKNOWN
     Route: 048
  2. MORPHINE SULFATE EXTENDED-RELEASE TABLETS (RHODES 74-769) [Suspect]
     Active Substance: MORPHINE SULFATE
     Indication: PRODUCT USED FOR UNKNOWN INDICATION
     Dosage: UNKNOWN
     Route: 048

REACTIONS (18)
  - Coma [Unknown]
  - Tooth extraction [Unknown]
  - Pain [Unknown]
  - Gait disturbance [Unknown]
  - Complex regional pain syndrome [Unknown]
  - Irritable bowel syndrome [Unknown]
  - Limb injury [Unknown]
  - Drug dependence [Unknown]
  - Surgery [Unknown]
  - Phobia of driving [Unknown]
  - Dry mouth [Unknown]
  - Necrosis [Unknown]
  - Overdose [Unknown]
  - Near death experience [Unknown]
  - Mental disorder [Unknown]
  - Defaecation disorder [Unknown]
  - Urinary incontinence [Unknown]
  - Mass [Unknown]

NARRATIVE: CASE EVENT DATE: 201204
